FAERS Safety Report 4570211-3 (Version None)
Quarter: 2005Q1

REPORT INFORMATION
  Report Type: 
  Country: None (occurrence: None)
  Receive Date: 20050202
  Receipt Date: 20050121
  Transmission Date: 20050727
  Serious: Yes (Other)
  Sender: FDA-Public Use
  Company Number: 2004120542

PATIENT
  Sex: 0

DRUGS (1)
  1. EPIRUBICIN [Suspect]
     Indication: HEPATIC NEOPLASM MALIGNANT
     Dosage: INTRA-ARTERIAL
     Route: 013

REACTIONS (3)
  - AMNESTIC DISORDER [None]
  - DELIRIUM [None]
  - DEMENTIA [None]
